FAERS Safety Report 8836564 (Version 1)
Quarter: 2012Q4

REPORT INFORMATION
  Report Type: Spontaneous
  Country: US (occurrence: None)
  Receive Date: 20121009
  Receipt Date: 20121009
  Transmission Date: 20130627
  Serious: Yes (Other)
  Sender: FDA-Public Use
  Company Number: ACO_32277_2012

PATIENT
  Age: 46 Year
  Sex: Female

DRUGS (3)
  1. AMPYRA [Suspect]
     Indication: MULTIPLE SCLEROSIS
     Dates: start: 2010
  2. BACLOFEN [Concomitant]
  3. AMANTADINE (AMANTADINE HYDROCHLORIDE) [Concomitant]

REACTIONS (3)
  - Upper limb fracture [None]
  - Fall [None]
  - Rotator cuff syndrome [None]
